FAERS Safety Report 14247623 (Version 1)
Quarter: 2017Q4

REPORT INFORMATION
  Report Type: Spontaneous
  Country: ES (occurrence: ES)
  Receive Date: 20171204
  Receipt Date: 20171204
  Transmission Date: 20180321
  Serious: Yes (Other)
  Sender: FDA-Public Use
  Company Number: ES-SA-2017SA240549

PATIENT
  Sex: Male

DRUGS (2)
  1. SOLOSTAR [Suspect]
     Active Substance: DEVICE
     Indication: TYPE 2 DIABETES MELLITUS
  2. LANTUS SOLOSTAR [Suspect]
     Active Substance: INSULIN GLARGINE
     Indication: TYPE 2 DIABETES MELLITUS
     Route: 058

REACTIONS (7)
  - Prostate cancer [Recovered/Resolved]
  - Cardiac disorder [Unknown]
  - Phimosis [Recovered/Resolved]
  - Blood cholesterol abnormal [Unknown]
  - Prostatitis [Recovered/Resolved]
  - Urethral disorder [Recovered/Resolved]
  - Venous occlusion [Unknown]
